FAERS Safety Report 9306597 (Version 2)
Quarter: 2013Q2

REPORT INFORMATION
  Report Type: Spontaneous
  Country: US (occurrence: US)
  Receive Date: 20130523
  Receipt Date: 20130606
  Transmission Date: 20140414
  Serious: Yes (Hospitalization)
  Sender: FDA-Public Use
  Company Number: US-PURDUE-USA-2013-0102313

PATIENT
  Age: 60 Year
  Sex: Male

DRUGS (5)
  1. BUTRANS [Suspect]
     Indication: FIBROMYALGIA
     Dosage: 10 MCG/HR, WEEKLY
     Route: 062
     Dates: start: 20130424, end: 20130430
  2. LORCET                             /00607101/ [Concomitant]
     Indication: PAIN
     Dosage: 650 MG, Q6H
     Route: 048
  3. BACLOFEN [Concomitant]
     Indication: MUSCLE RELAXANT THERAPY
     Dosage: 20 MG, TID
     Route: 048
  4. LIPITOR [Concomitant]
     Indication: BLOOD CHOLESTEROL
     Dosage: 20 MG, DAILY
     Route: 048
  5. EFFEXOR [Concomitant]
     Indication: DEPRESSION
     Dosage: 150 MG, DAILY
     Route: 048

REACTIONS (7)
  - Personality change [Recovered/Resolved]
  - Abasia [Recovered/Resolved]
  - Glassy eyes [Recovered/Resolved]
  - Dysstasia [Recovered/Resolved]
  - Dyskinesia [Recovered/Resolved]
  - Respiratory distress [Recovered/Resolved]
  - Muscle spasms [Recovered/Resolved]
